FAERS Safety Report 18257824 (Version 1)
Quarter: 2020Q3

REPORT INFORMATION
  Report Type: Report from Study
  Country: DE (occurrence: DE)
  Receive Date: 20200911
  Receipt Date: 20200911
  Transmission Date: 20201103
  Serious: Yes (Hospitalization)
  Sender: FDA-Public Use
  Company Number: DE-SHIRE-DE202023423

PATIENT

DRUGS (2)
  1. HUMAN IMMUNOGLOBULIN; HYALURONIDASE [Suspect]
     Active Substance: HUMAN IMMUNOGLOBULIN G\HYALURONIDASE RECOMBINANT HUMAN
     Dosage: 70 UNKNOWN UNIT, 1X A MONTH
     Route: 058
     Dates: start: 20200717
  2. HUMAN IMMUNOGLOBULIN; HYALURONIDASE [Suspect]
     Active Substance: HUMAN IMMUNOGLOBULIN G\HYALURONIDASE RECOMBINANT HUMAN
     Indication: DERMATOMYOSITIS
     Dosage: 70 UNKNOWN UNIT, 1X A MONTH
     Route: 058
     Dates: start: 20200508

REACTIONS (5)
  - Lower limb fracture [Unknown]
  - Bone deformity [Unknown]
  - Mobility decreased [Recovering/Resolving]
  - Hypokinesia [Recovering/Resolving]
  - Product use in unapproved indication [Not Recovered/Not Resolved]

NARRATIVE: CASE EVENT DATE: 20200512
